FAERS Safety Report 5587893-X (Version None)
Quarter: 2007Q4

REPORT INFORMATION
  Report Type: 
  Country: None (occurrence: None)
  Receive Date: 20071205
  Receipt Date: 20070621
  Transmission Date: 20080405
  Serious: Yes (Hospitalization)
  Sender: FDA-Public Use
  Company Number: HQWYE761922JUN07

PATIENT
  Age: 66 Year
  Sex: Female

DRUGS (3)
  1. EFFEXOR XR [Suspect]
     Indication: DEPRESSION
     Dosage: 37.5 MG 1 X PER 1 TOT, ORAL
     Route: 048
     Dates: start: 20070618, end: 20070618
  2. WELLBUTRIN [Concomitant]
  3. KLONOPIN [Concomitant]

REACTIONS (2)
  - DELIRIUM [None]
  - RASH MACULO-PAPULAR [None]
